FAERS Safety Report 7061545-1 (Version None)
Quarter: 2010Q4

REPORT INFORMATION
  Report Type: 
  Country: None (occurrence: None)
  Receive Date: 20101026
  Receipt Date: 20101006
  Transmission Date: 20110411
  Serious: Yes (Hospitalization)
  Sender: FDA-Public Use
  Company Number: FR-CELGENEUS-056-21880-09102367

PATIENT
  Sex: Male
  Weight: 67 kg

DRUGS (19)
  1. REVLIMID [Suspect]
     Route: 048
     Dates: start: 20091002, end: 20091012
  2. REVLIMID [Suspect]
     Route: 048
     Dates: end: 20091106
  3. REVLIMID [Suspect]
     Route: 048
     Dates: start: 20090729
  4. REVLIMID [Suspect]
     Route: 048
     Dates: start: 20091120
  5. ARACYTINE [Suspect]
     Route: 058
     Dates: start: 20091002, end: 20091006
  6. ARACYTINE [Suspect]
     Route: 058
     Dates: end: 20091106
  7. ARACYTINE [Suspect]
     Route: 058
     Dates: start: 20090729
  8. ARACYTINE [Suspect]
     Route: 058
     Dates: start: 20091120
  9. DAUNORUBICIN HCL [Suspect]
     Route: 051
     Dates: start: 20091002, end: 20091002
  10. DAUNORUBICIN HCL [Suspect]
     Route: 051
     Dates: end: 20091120
  11. DAUNORUBICIN HCL [Suspect]
     Route: 051
     Dates: start: 20090729
  12. NEXIUM [Concomitant]
     Indication: PRODUCT USED FOR UNKNOWN INDICATION
     Route: 051
  13. VALACYCLOVIR HYDROCHLORIDE [Concomitant]
     Indication: PRODUCT USED FOR UNKNOWN INDICATION
     Route: 048
     Dates: start: 20090902
  14. NOVORAPID [Concomitant]
     Indication: PRODUCT USED FOR UNKNOWN INDICATION
     Route: 065
  15. NOVOMIX [Concomitant]
     Indication: PRODUCT USED FOR UNKNOWN INDICATION
     Route: 065
  16. LANTUS [Concomitant]
     Indication: PRODUCT USED FOR UNKNOWN INDICATION
     Route: 065
  17. NEXIUM [Concomitant]
     Indication: PRODUCT USED FOR UNKNOWN INDICATION
     Route: 065
  18. BACTRIM DS [Concomitant]
     Indication: PRODUCT USED FOR UNKNOWN INDICATION
     Route: 065
  19. SPECIAFOLDINE [Concomitant]
     Indication: PRODUCT USED FOR UNKNOWN INDICATION
     Route: 065

REACTIONS (3)
  - ABDOMINAL PAIN [None]
  - CYTOLYTIC HEPATITIS [None]
  - FEBRILE BONE MARROW APLASIA [None]
